FAERS Safety Report 4321910-X (Version None)
Quarter: 2004Q1

REPORT INFORMATION
  Report Type: 
  Country: None (occurrence: None)
  Receive Date: 20040316
  Receipt Date: 20040228
  Transmission Date: 20041129
  Serious: Yes (Life-Threatening)
  Sender: FDA-Public Use
  Company Number: 2004SA000026

PATIENT
  Age: 18 Year
  Sex: Male
  Weight: 58.2 kg

DRUGS (4)
  1. THYMOGLOBULIN [Suspect]
     Indication: TRANSPLANT
     Dosage: 90 MG; DAILY; INTRAVENOUS
     Route: 042
     Dates: start: 20030716, end: 20030725
  2. SOLU-MEDROL [Concomitant]
  3. CELLCEPT [Concomitant]
  4. GENERAL ANESTHESIA [Concomitant]

REACTIONS (8)
  - ACUTE PULMONARY OEDEMA [None]
  - CAPILLARY LEAK SYNDROME [None]
  - COMPLICATIONS OF TRANSPLANT SURGERY [None]
  - FLUID OVERLOAD [None]
  - GRAFT DYSFUNCTION [None]
  - HYPOXIA [None]
  - RENAL TUBULAR NECROSIS [None]
  - RESPIRATORY FAILURE [None]
